FAERS Safety Report 5942498-3 (Version None)
Quarter: 2008Q4

REPORT INFORMATION
  Report Type: 
  Country: None (occurrence: None)
  Receive Date: 20081105
  Receipt Date: 20080905
  Transmission Date: 20090506
  Serious: Yes (Death, Hospitalization)
  Sender: FDA-Public Use
  Company Number: US-GENENTECH-262153

PATIENT
  Sex: Female
  Weight: 46.712 kg

DRUGS (28)
  1. RITUXIMAB [Suspect]
     Indication: RHEUMATOID ARTHRITIS
     Dosage: 1000 MG, DAYS 1+15
     Route: 042
     Dates: start: 20030907, end: 20061102
  2. METHYLPREDNISOLONE 16MG TAB [Suspect]
     Indication: RHEUMATOID ARTHRITIS
     Dosage: 100 MG, DAYS 1+15
     Route: 042
     Dates: start: 20040316, end: 20061111
  3. PREDNISONE TAB [Suspect]
     Indication: RHEUMATOID ARTHRITIS
     Dosage: UNK, DAYS 2-14
     Route: 048
  4. CARBOPLATIN [Suspect]
     Indication: TONSIL CANCER
     Dosage: UNK, UNK
     Dates: start: 20070807, end: 20070921
  5. METHOTREXATE [Concomitant]
     Indication: RHEUMATOID ARTHRITIS
     Dosage: 20 MG, UNK
     Dates: start: 20050221
  6. ERBITUX [Suspect]
     Indication: TONSIL CANCER
     Dosage: UNK
     Dates: start: 20070807
  7. FOLIC ACID [Concomitant]
     Indication: RHEUMATOID ARTHRITIS
  8. DARVOCET [Concomitant]
     Indication: RHEUMATOID ARTHRITIS
  9. DECADRON [Concomitant]
     Indication: RHEUMATOID ARTHRITIS
     Dates: start: 20070801
  10. CLINDAMYCIN HCL [Concomitant]
     Indication: DRUG USE FOR UNKNOWN INDICATION
  11. INVANZ [Concomitant]
     Indication: DRUG USE FOR UNKNOWN INDICATION
  12. LOTRISONE [Concomitant]
     Indication: DRUG USE FOR UNKNOWN INDICATION
  13. LOVENOX [Concomitant]
     Indication: DRUG USE FOR UNKNOWN INDICATION
  14. RANITIDINE [Concomitant]
     Indication: DRUG USE FOR UNKNOWN INDICATION
  15. REGLAN [Concomitant]
     Indication: DRUG USE FOR UNKNOWN INDICATION
  16. DOXYCYCLINE [Concomitant]
     Indication: DRUG USE FOR UNKNOWN INDICATION
     Dates: start: 20050322
  17. ACYCLOVIR [Concomitant]
     Indication: DRUG USE FOR UNKNOWN INDICATION
  18. PROVIGIL [Concomitant]
     Indication: DRUG USE FOR UNKNOWN INDICATION
  19. CYMBALTA [Concomitant]
     Indication: DRUG USE FOR UNKNOWN INDICATION
  20. ESTROGENIC SUBSTANCE [Concomitant]
     Indication: DRUG USE FOR UNKNOWN INDICATION
     Dosage: UNK
     Dates: start: 19890101
  21. NEXIUM [Concomitant]
     Indication: DRUG USE FOR UNKNOWN INDICATION
  22. LEVOTHYROXINE SODIUM [Concomitant]
     Indication: DRUG USE FOR UNKNOWN INDICATION
     Dosage: UNK
     Dates: start: 19950101
  23. FLUCONAZOLE [Concomitant]
     Indication: DRUG USE FOR UNKNOWN INDICATION
  24. LODINE [Concomitant]
     Indication: DRUG USE FOR UNKNOWN INDICATION
  25. OXYCONTIN [Concomitant]
     Indication: DRUG USE FOR UNKNOWN INDICATION
     Dosage: UNK
     Dates: start: 20070901
  26. DIFLUCAN [Concomitant]
     Indication: DRUG USE FOR UNKNOWN INDICATION
     Dates: start: 20070201
  27. VIGAMOX [Concomitant]
     Indication: DRUG USE FOR UNKNOWN INDICATION
     Dates: start: 20060215
  28. CALCIUM/VITAMIN D [Concomitant]
     Indication: DRUG USE FOR UNKNOWN INDICATION
     Dates: start: 19990101

REACTIONS (1)
  - PROGRESSIVE MULTIFOCAL LEUKOENCEPHALOPATHY [None]
